FAERS Safety Report 18896819 (Version 2)
Quarter: 2021Q1

REPORT INFORMATION
  Report Type: Spontaneous
  Country: US (occurrence: US)
  Receive Date: 20210216
  Receipt Date: 20210322
  Transmission Date: 20210420
  Serious: Yes (Hospitalization, Other)
  Sender: FDA-Public Use
  Company Number: US-GLAXOSMITHKLINE-US2021AMR037241

PATIENT
  Age: 49 Year
  Sex: Female

DRUGS (3)
  1. BENLYSTA [Suspect]
     Active Substance: BELIMUMAB
     Dosage: UNK, CYC
     Dates: start: 2020
  2. BENLYSTA [Suspect]
     Active Substance: BELIMUMAB
     Indication: PRODUCT USED FOR UNKNOWN INDICATION
     Dosage: UNK UNK, CYC
     Route: 042
     Dates: end: 201903
  3. BENLYSTA [Suspect]
     Active Substance: BELIMUMAB
     Dosage: UNK, CYC
     Dates: start: 202005, end: 202010

REACTIONS (4)
  - Hypogammaglobulinaemia [Unknown]
  - Gene mutation [Unknown]
  - Breast cancer [Unknown]
  - COVID-19 [Unknown]

NARRATIVE: CASE EVENT DATE: 202010
